FAERS Safety Report 8219530-X (Version None)
Quarter: 2012Q1

REPORT INFORMATION
  Report Type: 
  Country: None (occurrence: None)
  Receive Date: 20120319
  Receipt Date: 20120312
  Transmission Date: 20120608
  Serious: Yes (Hospitalization, Other)
  Sender: FDA-Public Use
  Company Number: PHHY2012KR021419

PATIENT
  Age: 61 Year
  Sex: Female

DRUGS (4)
  1. TAMIFLU [Interacting]
     Dosage: 150 MG, QD
  2. AZITHROMYCIN [Concomitant]
  3. WARFARIN SODIUM [Interacting]
     Indication: DEEP VEIN THROMBOSIS
  4. WARFARIN SODIUM [Suspect]
     Indication: PULMONARY EMBOLISM

REACTIONS (4)
  - DRUG INTERACTION [None]
  - ASCITES [None]
  - INTERNATIONAL NORMALISED RATIO INCREASED [None]
  - H1N1 INFLUENZA [None]
